FAERS Safety Report 9674691 (Version 1)
Quarter: 2013Q4

REPORT INFORMATION
  Report Type: Spontaneous
  Country: US (occurrence: US)
  Receive Date: 20131107
  Receipt Date: 20131107
  Transmission Date: 20140711
  Serious: Yes (Death)
  Sender: FDA-Public Use
  Company Number: US-GLENMARK GENERICS INC.-2013GMK007393

PATIENT
  Age: 69 Year
  Sex: Female

DRUGS (1)
  1. DIPYRIDAMOLE [Suspect]
     Indication: SCAN MYOCARDIAL PERFUSION
     Dosage: UNK

REACTIONS (4)
  - Subarachnoid haemorrhage [Fatal]
  - Headache [Fatal]
  - Unresponsive to stimuli [Fatal]
  - Hypotension [Fatal]
